FAERS Safety Report 16820627 (Version 1)
Quarter: 2019Q3

REPORT INFORMATION
  Report Type: Spontaneous
  Country: CH (occurrence: CH)
  Receive Date: 20190918
  Receipt Date: 20190918
  Transmission Date: 20191005
  Serious: Yes (Hospitalization, Other)
  Sender: FDA-Public Use
  Company Number: CH-TEVA-2019-CH-1107993

PATIENT
  Age: 88 Year
  Sex: Male

DRUGS (4)
  1. ATENOLOL. [Suspect]
     Active Substance: ATENOLOL
     Indication: ATRIAL FIBRILLATION
     Route: 065
  2. NIFEDIPINE. [Suspect]
     Active Substance: NIFEDIPINE
     Indication: CARDIAC FLUTTER
  3. NIFEDIPINE. [Suspect]
     Active Substance: NIFEDIPINE
     Indication: ATRIAL FIBRILLATION
     Route: 065
  4. ATENOLOL. [Suspect]
     Active Substance: ATENOLOL
     Indication: CARDIAC FLUTTER

REACTIONS (3)
  - Hot flush [Unknown]
  - Erythema [Unknown]
  - Sinus node dysfunction [Recovered/Resolved]
